FAERS Safety Report 6703430-8 (Version None)
Quarter: 2010Q2

REPORT INFORMATION
  Report Type: 
  Country: None (occurrence: None)
  Receive Date: 20100430
  Receipt Date: 20100420
  Transmission Date: 20101027
  Serious: Yes (Death)
  Sender: FDA-Public Use
  Company Number: US-JNJFOC-20100407760

PATIENT
  Age: 61 Year
  Sex: Female

DRUGS (2)
  1. INFLIXIMAB [Suspect]
     Indication: GRAFT VERSUS HOST DISEASE
     Route: 042
  2. MYCOPHENOLATE MOFETIL [Concomitant]

REACTIONS (9)
  - ACUTE GRAFT VERSUS HOST DISEASE IN INTESTINE [None]
  - ACUTE GRAFT VERSUS HOST DISEASE IN LIVER [None]
  - ACUTE GRAFT VERSUS HOST DISEASE IN SKIN [None]
  - DRUG INEFFECTIVE FOR UNAPPROVED INDICATION [None]
  - FALL [None]
  - GRAFT VERSUS HOST DISEASE [None]
  - INFECTION [None]
  - SEPSIS [None]
  - SUBDURAL HAEMATOMA [None]
